FAERS Safety Report 12078987 (Version 2)
Quarter: 2016Q1

REPORT INFORMATION
  Report Type: Spontaneous
  Country: US (occurrence: US)
  Receive Date: 20160216
  Receipt Date: 20160224
  Transmission Date: 20160526
  Serious: Yes (Other)
  Sender: FDA-Public Use
  Company Number: US-PFIZER INC-2016032909

PATIENT
  Age: 64 Year
  Sex: Female

DRUGS (14)
  1. RITALIN [Concomitant]
     Active Substance: METHYLPHENIDATE HYDROCHLORIDE
     Indication: DEPRESSION
     Dosage: 10 MG, UNK (1 - AM 20MG, 1 - NOON, 1 - B4 BED)
     Dates: start: 2014
  2. OMEPRAZOLE. [Concomitant]
     Active Substance: OMEPRAZOLE
     Indication: FUNCTIONAL GASTROINTESTINAL DISORDER
     Dosage: 40 MG, UNK
     Dates: start: 2014
  3. ASPIRIN. [Concomitant]
     Active Substance: ASPIRIN
     Dosage: 81 MG, UNK
  4. ATIVAN [Concomitant]
     Active Substance: LORAZEPAM
     Indication: ANXIETY
  5. RITALIN [Concomitant]
     Active Substance: METHYLPHENIDATE HYDROCHLORIDE
     Indication: ANXIETY
  6. SEROQUEL [Concomitant]
     Active Substance: QUETIAPINE FUMARATE
     Indication: DEPRESSION
     Dosage: 200 MG, UNK (2 AT BED)
     Dates: start: 2014
  7. SEROQUEL [Concomitant]
     Active Substance: QUETIAPINE FUMARATE
     Indication: ANXIETY
  8. JENTADUETO [Concomitant]
     Active Substance: LINAGLIPTIN\METFORMIN HYDROCHLORIDE
     Indication: TYPE 2 DIABETES MELLITUS
     Dosage: UNK (LINAGLIPTIN 2.5, METFORMIN HYDROCHLORIDE 1000)
     Dates: start: 2014
  9. SIMVASTATIN. [Concomitant]
     Active Substance: SIMVASTATIN
     Dosage: 10 MG, UNK
     Dates: start: 2014
  10. ATIVAN [Concomitant]
     Active Substance: LORAZEPAM
     Indication: DEPRESSION
     Dosage: UNK (1 - 1 MG AM, 1/2 - 4PM, 1/2 - 9PM)
  11. BENAZEPRIL [Concomitant]
     Active Substance: BENAZEPRIL HYDROCHLORIDE
     Indication: BLOOD PRESSURE INCREASED
     Dosage: 20 MG, UNK
     Dates: start: 2014
  12. EFFEXOR XR [Suspect]
     Active Substance: VENLAFAXINE HYDROCHLORIDE
     Indication: DEPRESSION
     Dosage: 450 MG, 1X/DAY (3-150 MG IN THE AM EVERY DAY)
  13. BUSPIRONE [Concomitant]
     Active Substance: BUSPIRONE HYDROCHLORIDE
     Indication: DEPRESSION
     Dosage: 15 MG, UNK (2 - AM 15MG, 2 - PM)
     Dates: start: 2014
  14. BUSPIRONE [Concomitant]
     Active Substance: BUSPIRONE HYDROCHLORIDE
     Indication: ANXIETY

REACTIONS (6)
  - Gastrointestinal disorder [Unknown]
  - Type 2 diabetes mellitus [Unknown]
  - Depression [Unknown]
  - Hypertension [Unknown]
  - Anxiety [Unknown]
  - Condition aggravated [Unknown]

NARRATIVE: CASE EVENT DATE: 1990
